FAERS Safety Report 9639850 (Version 1)
Quarter: 2013Q4

REPORT INFORMATION
  Report Type: Spontaneous
  Country: US (occurrence: None)
  Receive Date: 20131021
  Receipt Date: 20131021
  Transmission Date: 20140711
  Serious: Yes (Hospitalization, Other)
  Sender: FDA-Public Use
  Company Number: None

PATIENT
  Age: 24 Year
  Sex: Female
  Weight: 111.13 kg

DRUGS (2)
  1. PROLIXIN [Suspect]
     Indication: DRUG PRESCRIBING ERROR
     Dosage: 14 PILLS AT BEDTIME TAKEN BY MOUTH
     Route: 048
     Dates: start: 20131009, end: 20131011
  2. TEGRETOL [Suspect]
     Indication: DRUG PRESCRIBING ERROR
     Dosage: 2 PILLS AT BEDTIME TAKEN BY MOUTH
     Route: 048

REACTIONS (10)
  - Constipation [None]
  - Asthenia [None]
  - Headache [None]
  - Fall [None]
  - Head injury [None]
  - Dizziness [None]
  - Feeling jittery [None]
  - Agitation [None]
  - Mood altered [None]
  - Rash [None]
